FAERS Safety Report 9874728 (Version 1)
Quarter: 2014Q1

REPORT INFORMATION
  Report Type: Other
  Country: US (occurrence: US)
  Receive Date: 20140206
  Receipt Date: 20140206
  Transmission Date: 20141002
  Serious: No
  Sender: FDA-Public Use
  Company Number: US-ACORDA-ACO_35271_2013

PATIENT
  Sex: Female
  Weight: 72.56 kg

DRUGS (11)
  1. AMPYRA [Suspect]
     Indication: PRODUCT USED FOR UNKNOWN INDICATION
     Dosage: 10 MG, BID
     Route: 048
  2. AMPYRA [Suspect]
     Dosage: 10 MG, QD
     Route: 048
  3. BACLOFEN [Concomitant]
  4. COPAXONE [Concomitant]
  5. CRESTOR [Concomitant]
  6. ENABLEX [Concomitant]
  7. LEVOTHYROXINE SODIUM [Concomitant]
  8. NEURONTIN [Concomitant]
  9. PROVIGIL [Concomitant]
  10. QUINAPRIL [Concomitant]
  11. ZOLOFT [Concomitant]

REACTIONS (2)
  - Neuralgia [Recovered/Resolved]
  - Paraesthesia [Recovered/Resolved]
